FAERS Safety Report 8450897-3 (Version None)
Quarter: 2012Q2

REPORT INFORMATION
  Report Type: 
  Country: None (occurrence: None)
  Receive Date: 20120620
  Receipt Date: 20120606
  Transmission Date: 20120825
  Serious: Yes (Hospitalization)
  Sender: FDA-Public Use
  Company Number: US-UCBSA-058958

PATIENT
  Age: 80 Year
  Sex: Male
  Weight: 77 kg

DRUGS (15)
  1. ISTALOL/TIMOLOL [Concomitant]
     Indication: GLAUCOMA
     Dates: start: 20010601
  2. CD/LD [Concomitant]
     Indication: PARKINSON'S DISEASE
     Dosage: 25/100; 2 TABS
     Dates: start: 20060901
  3. CLONAZEPAM [Concomitant]
     Dosage: QHS
     Dates: start: 20090301
  4. FINASTERIDE [Concomitant]
     Indication: BENIGN PROSTATIC HYPERPLASIA
     Dates: start: 20080101
  5. CLONAZEPAM [Concomitant]
     Dosage: QHS
     Dates: start: 20090301
  6. ZOLPIDEM [Concomitant]
     Indication: INSOMNIA
     Dates: start: 20090301
  7. CD/LD [Concomitant]
     Dosage: 50/200 ; 1 TAB
     Dates: start: 20060901
  8. ROTIGOTINE [Suspect]
     Indication: PARKINSON'S DISEASE
     Route: 062
  9. AMLODIPINE [Concomitant]
     Indication: HYPERTENSION
     Dates: start: 20060601
  10. AMANTADINE HCL [Concomitant]
     Indication: PARKINSON'S DISEASE
     Dosage: 1.5 TBSP
     Dates: start: 20061201
  11. LISINOPRIL [Concomitant]
     Indication: HYPERTENSION
     Dates: start: 20060101
  12. VENLAFAXINE HCL [Concomitant]
     Indication: DEPRESSION
     Dates: start: 20090301
  13. ATENOLOL [Concomitant]
     Indication: HYPERTENSION
     Dates: start: 20060301
  14. CLONAZEPAM [Concomitant]
     Indication: ANXIETY
     Dates: start: 20090301
  15. CLONAZEPAM [Concomitant]
     Indication: INSOMNIA
     Dates: start: 20090301

REACTIONS (1)
  - FIBULA FRACTURE [None]
